FAERS Safety Report 4507027-X (Version None)
Quarter: 2004Q4

REPORT INFORMATION
  Report Type: 
  Country: None (occurrence: None)
  Receive Date: 20041122
  Receipt Date: 20041028
  Transmission Date: 20050328
  Serious: Yes (Hospitalization)
  Sender: FDA-Public Use
  Company Number: US-MERCK-0411USA00338

PATIENT
  Age: 82 Year
  Sex: Female
  Weight: 77 kg

DRUGS (9)
  1. ZETIA [Suspect]
     Indication: HYPERLIPIDAEMIA
     Route: 048
     Dates: start: 20040825, end: 20041001
  2. METOPROLOL [Concomitant]
     Indication: HYPERTENSION
     Route: 065
  3. FLECAINIDE ACETATE [Concomitant]
     Indication: ARRHYTHMIA
     Route: 065
  4. ZOCOR [Concomitant]
     Indication: HYPERLIPIDAEMIA
     Route: 048
  5. ASPIRIN [Concomitant]
     Route: 065
  6. ALTACE [Concomitant]
     Indication: HYPERTENSION
     Route: 065
  7. FOLIC ACID [Concomitant]
     Route: 065
  8. MAXZIDE [Concomitant]
     Indication: HYPERTENSION
     Route: 065
  9. POTASSIUM (UNSPECIFIED) [Concomitant]
     Route: 065

REACTIONS (7)
  - BLOOD PRESSURE INADEQUATELY CONTROLLED [None]
  - CHEST PAIN [None]
  - DYSPNOEA [None]
  - HYPERTENSION [None]
  - HYPONATRAEMIA [None]
  - PALPITATIONS [None]
  - RENAL FAILURE [None]
